FAERS Safety Report 5925011-6 (Version None)
Quarter: 2008Q3

REPORT INFORMATION
  Report Type: 
  Country: None (occurrence: None)
  Receive Date: 20080909
  Receipt Date: 20080409
  Transmission Date: 20090109
  Serious: Yes (Hospitalization)
  Sender: FDA-Public Use
  Company Number: 163-20785-08040814

PATIENT
  Age: 63 Year
  Sex: Male
  Weight: 79.6 kg

DRUGS (34)
  1. THALOMID [Suspect]
     Indication: MULTIPLE MYELOMA
     Dosage: 100 MG, ORAL : 200 MG, ORAL
     Route: 048
     Dates: end: 20060901
  2. THALOMID [Suspect]
     Indication: MULTIPLE MYELOMA
     Dosage: 100 MG, ORAL : 200 MG, ORAL
     Route: 048
     Dates: start: 20060415
  3. VELCADE [Suspect]
     Indication: MULTIPLE MYELOMA
     Dosage: 1 MG/M2
     Dates: end: 20060602
  4. VELCADE [Suspect]
     Indication: MULTIPLE MYELOMA
     Dosage: 1 MG/M2
     Dates: start: 20060412
  5. DEXAMETHASONE TAB [Suspect]
     Indication: MULTIPLE MYELOMA
     Dosage: 40 MG
     Dates: end: 20061008
  6. DEXAMETHASONE TAB [Suspect]
     Indication: MULTIPLE MYELOMA
     Dosage: 40 MG
     Dates: start: 20060415
  7. CISPLATIN [Suspect]
     Indication: MULTIPLE MYELOMA
     Dosage: 10 MG/M2
     Dates: start: 20060415
  8. CISPLATIN [Suspect]
     Indication: MULTIPLE MYELOMA
     Dosage: 10 MG/M2
     Dates: start: 20060526
  9. ADRIAMYCIN PFS [Suspect]
     Indication: MULTIPLE MYELOMA
     Dosage: 10 MG/M2
     Dates: start: 20060415
  10. ADRIAMYCIN PFS [Suspect]
     Indication: MULTIPLE MYELOMA
     Dosage: 10 MG/M2
     Dates: start: 20060526
  11. CYCLOPHOSPHAMIDE [Suspect]
     Indication: MULTIPLE MYELOMA
     Dosage: 400 MG/M2
     Dates: start: 20060415
  12. CYCLOPHOSPHAMIDE [Suspect]
     Indication: MULTIPLE MYELOMA
     Dosage: 400 MG/M2
     Dates: start: 20060526
  13. ETOPOSIDE [Suspect]
     Indication: MULTIPLE MYELOMA
     Dosage: 40 MG/M2
     Dates: start: 20060415
  14. ETOPOSIDE [Suspect]
     Indication: MULTIPLE MYELOMA
     Dosage: 40 MG/M2
     Dates: start: 20060426
  15. MELPHALAN (MELPHALAN) [Suspect]
     Indication: MULTIPLE MYELOMA
     Dosage: 200 MG/M2
     Dates: start: 20060703
  16. MELPHALAN (MELPHALAN) [Suspect]
     Indication: MULTIPLE MYELOMA
     Dosage: 200 MG/M2
     Dates: start: 20061007
  17. VFEND [Concomitant]
  18. PRIMAXIN (PRIMAXIN) [Concomitant]
  19. CUBICIN [Concomitant]
  20. ACYCLOVIR [Concomitant]
  21. FLAGYL [Concomitant]
  22. METHYLPREDNISOLONE SODIUM (METHYLPREDNISOLONE) [Concomitant]
  23. AMBIEN [Concomitant]
  24. BENTYL (DICYCLOVERINE HYDROCHLORIDE) (CAPSULES) [Concomitant]
  25. FLOMAX [Concomitant]
  26. ZOFRAN [Concomitant]
  27. OXYCODONE HCL [Concomitant]
  28. PHYTONADIONE [Concomitant]
  29. PROTONIX [Concomitant]
  30. NEUPOGEN [Concomitant]
  31. IMODIUM A-D [Concomitant]
  32. PROCRIT [Concomitant]
  33. MEDROL [Concomitant]
  34. DOXYCYCLINE HYCLATE (DOXYCYCLINE HYCLATE) [Concomitant]

REACTIONS (1)
  - PNEUMONIA [None]
